FAERS Safety Report 8847625 (Version 1)
Quarter: 2012Q4

REPORT INFORMATION
  Report Type: 
  Country: CA (occurrence: CA)
  Receive Date: 20121018
  Receipt Date: 20121018
  Transmission Date: 20130627
  Serious: Yes (Death, Other)
  Sender: FDA-Public Use
  Company Number: CA-ELI_LILLY_AND_COMPANY-CA201210001936

PATIENT
  Age: 64 Year
  Sex: Male

DRUGS (8)
  1. PROZAC [Suspect]
     Dosage: 1 DF, unknown
  2. ZYPREXA [Concomitant]
     Dosage: 1 DF, unknown
  3. WELLBUTRIN [Concomitant]
     Dosage: 1 DF, unknown
  4. SERAX [Concomitant]
     Dosage: 1 DF, unknown
  5. RESTORIL [Concomitant]
     Dosage: 1 DF, unknown
  6. NYQUIL [Concomitant]
     Dosage: 1 DF, unknown
  7. BIAXIN XL [Concomitant]
     Dosage: 2 DF, qd
  8. BENYLIN DM [Concomitant]
     Dosage: 1 DF, unknown

REACTIONS (4)
  - Cardiac failure [Fatal]
  - Toxicity to various agents [Unknown]
  - Somnolence [Unknown]
  - Serotonin syndrome [Unknown]
